FAERS Safety Report 7502878-1 (Version None)
Quarter: 2011Q2

REPORT INFORMATION
  Report Type: 
  Country: None (occurrence: None)
  Receive Date: 20110525
  Receipt Date: 20100822
  Transmission Date: 20111010
  Serious: No
  Sender: FDA-Public Use
  Company Number: US-NOVEN-ALL1-2010-04422

PATIENT
  Age: 12 Year
  Sex: Male
  Weight: 27.211 kg

DRUGS (2)
  1. DAYTRANA [Suspect]
     Dosage: 20 MG, 1X/DAY:QD
     Route: 062
     Dates: start: 20060101
  2. DAYTRANA [Suspect]
     Dosage: 40 MG, 1X/DAY:QD (TWO 20 MG PATCHES)
     Route: 062
     Dates: start: 20100817

REACTIONS (3)
  - OVERDOSE [None]
  - PRODUCT QUALITY ISSUE [None]
  - NO ADVERSE EVENT [None]
